FAERS Safety Report 5123667-1 (Version None)
Quarter: 2006Q4

REPORT INFORMATION
  Report Type: 
  Country: None (occurrence: None)
  Receive Date: 20061010
  Receipt Date: 20060315
  Transmission Date: 20070319
  Serious: Yes (Other)
  Sender: FDA-Public Use
  Company Number: US-NOVOPROD-251627

PATIENT
  Age: 40 Year
  Sex: Male
  Weight: 76 kg

DRUGS (1)
  1. NOVOLOG [Suspect]
     Indication: DIABETES MELLITUS INSULIN-DEPENDENT
     Dosage: SLIDING SCALE, TID
     Route: 058
     Dates: start: 20010301, end: 20020301

REACTIONS (2)
  - BLOOD GLUCOSE INCREASED [None]
  - CHEST PAIN [None]
